FAERS Safety Report 7806477-3 (Version None)
Quarter: 2011Q4

REPORT INFORMATION
  Report Type: 
  Country: None (occurrence: None)
  Receive Date: 20111011
  Receipt Date: 20111001
  Transmission Date: 20120403
  Serious: Yes (Death, Other)
  Sender: FDA-Public Use
  Company Number: CO-GENZYME-CLOF-1001842

PATIENT
  Age: 12 Year
  Sex: Male
  Weight: 28 kg

DRUGS (7)
  1. FLUCONAZOLE [Concomitant]
     Indication: PRODUCT USED FOR UNKNOWN INDICATION
     Dosage: 6 MG/KG, QD
     Route: 048
  2. PIPERACILLIN [Concomitant]
     Indication: PRODUCT USED FOR UNKNOWN INDICATION
     Dosage: 300 MG/KG, QD (DISTRIBUTED EVERY 6 HOURS)
     Route: 065
  3. TAZOBACTAM [Concomitant]
     Indication: PRODUCT USED FOR UNKNOWN INDICATION
     Dosage: 300 MG/KG, QD (DISTRIBUTED EVERY SIX HOURS)
     Route: 065
  4. ALLOPURINOL [Concomitant]
     Indication: PRODUCT USED FOR UNKNOWN INDICATION
     Route: 065
  5. CLOFARABINE [Suspect]
     Dosage: 60 MG, QD (INFUSION OF 2 HOURS)
     Route: 042
  6. CLOFARABINE [Suspect]
     Indication: ACUTE LYMPHOCYTIC LEUKAEMIA
     Dosage: 52 MG/M2, QD X 5
     Route: 065
  7. HYDROCORTISONE [Concomitant]
     Indication: PRODUCT USED FOR UNKNOWN INDICATION
     Route: 065

REACTIONS (8)
  - CAECITIS [None]
  - FEBRILE NEUTROPENIA [None]
  - HYPOALBUMINAEMIA [None]
  - PLEURAL EFFUSION [None]
  - BACTERIAL SEPSIS [None]
  - DEATH [None]
  - NEUTROPHIL COUNT DECREASED [None]
  - FUNGAL TEST POSITIVE [None]
